FAERS Safety Report 16911647 (Version 2)
Quarter: 2019Q4

REPORT INFORMATION
  Report Type: Spontaneous
  Country: IT (occurrence: IT)
  Receive Date: 20191013
  Receipt Date: 20191018
  Transmission Date: 20200122
  Serious: Yes (Other)
  Sender: FDA-Public Use
  Company Number: IT-AUROBINDO-AUR-APL-2019-065907

PATIENT
  Age: 45 Year
  Sex: Male

DRUGS (10)
  1. ZOLEDRONIC ACID [Suspect]
     Active Substance: ZOLEDRONIC ACID
     Indication: PLASMA CELL MYELOMA
     Dosage: RECEIVED 3 CYCLES, 1 MONTH INTERVAL
     Route: 041
  2. BORTEZOMIB. [Suspect]
     Active Substance: BORTEZOMIB
     Indication: PLASMA CELL MYELOMA
     Dosage: ADMINISTERED BIWEEKLY ON DAYS 1, 4, 8, 11 IN A 21-DAY CYCLE. RECEIVED 3 CYCLES.
     Route: 058
  3. CISPLATIN. [Suspect]
     Active Substance: CISPLATIN
     Indication: PLASMA CELL MYELOMA
     Dosage: 15 MILLIGRAM/SQ. METER, ONCE A DAY
     Route: 065
  4. CYCLOPHOSPHAMIDE. [Suspect]
     Active Substance: CYCLOPHOSPHAMIDE
     Indication: PLASMA CELL MYELOMA
     Dosage: FOR 4 DAYS
     Route: 065
  5. DEXAMETHASONE. [Suspect]
     Active Substance: DEXAMETHASONE
     Indication: PLASMA CELL MYELOMA
     Dosage: ADMINISTERED ON DAYS 1-4
     Route: 042
  6. CARFILZOMIB [Concomitant]
     Active Substance: CARFILZOMIB
     Indication: PLASMA CELL MYELOMA
     Dosage: ADMINISTERED ON DAYS 1, 2, 8, 9, 15 AND 16 IN A 28-DAY CYCLE.
     Route: 042
  7. LENALIDOMIDE [Concomitant]
     Active Substance: LENALIDOMIDE
     Indication: PLASMA CELL MYELOMA
     Dosage: ADMINISTERED ON DAYS 1-21 IN A 28-DAY CYCLE.
     Route: 048
  8. THALIDOMIDE [Suspect]
     Active Substance: THALIDOMIDE
     Indication: PLASMA CELL MYELOMA
     Dosage: ADMINISTERED ON DAYS 1-21 DAYS IN A 21-DAY CYCLE. RECEIVED 3 CYCLES.
     Route: 065
  9. DEXAMETHASONE. [Suspect]
     Active Substance: DEXAMETHASONE
     Dosage: AS A PART OF VTD REGIMEN: ADMINISTERED ON DAYS 1, 4, 8, 11 IN A 21-DAY CYCLE
     Route: 048
  10. ETOPOSIDE. [Suspect]
     Active Substance: ETOPOSIDE
     Indication: PLASMA CELL MYELOMA
     Dosage: CONTINUOUS INFUSION OVER 24 HOURS
     Route: 065

REACTIONS (3)
  - Thrombocytopenia [Recovered/Resolved]
  - Treatment failure [Unknown]
  - Neutropenia [Recovered/Resolved]
